FAERS Safety Report 10014805 (Version 1)
Quarter: 2014Q1

REPORT INFORMATION
  Report Type: Spontaneous
  Country: SK (occurrence: SK)
  Receive Date: 20140317
  Receipt Date: 20140317
  Transmission Date: 20141002
  Serious: Yes (Hospitalization)
  Sender: FDA-Public Use
  Company Number: SK-B.I. PHARMACEUTICALS,INC./RIDGEFIELD-2014-BI-10771SK

PATIENT
  Sex: Male

DRUGS (11)
  1. PRADAXA [Suspect]
     Indication: ATRIAL FIBRILLATION
     Dosage: 300 MG
     Route: 048
     Dates: end: 201402
  2. ISOPTIN 80 MG /VERAPAMIL [Concomitant]
     Route: 048
  3. PERINDOPRIL [Concomitant]
     Dosage: 4 MG
     Route: 048
  4. NOVOMIX 30/INSULIN ASPARTATE [Concomitant]
     Route: 058
     Dates: start: 2012
  5. THIOGAMMA 600 [Concomitant]
     Dosage: 600 MG
     Route: 048
  6. KALDYUM/POTASSIUM CHLORIDE [Concomitant]
     Dosage: 600 MG
     Route: 065
     Dates: start: 201402
  7. VENOFER [Concomitant]
     Route: 042
     Dates: start: 201402, end: 201402
  8. AKTIFERRIN COMPOSITUM [Concomitant]
     Route: 048
     Dates: start: 201402, end: 201402
  9. CIPRINOL 500/CIPROFLOXACIN [Concomitant]
     Route: 048
     Dates: start: 201402, end: 201402
  10. FRAXIPARINE/NADROPARINE [Concomitant]
     Route: 058
     Dates: start: 201402, end: 201402
  11. XARELTO 20 MG/RIVAROXABAN [Concomitant]
     Dosage: 20 MG
     Route: 048
     Dates: start: 201402

REACTIONS (2)
  - Inflammatory marker increased [Recovered/Resolved]
  - Haematuria [Recovered/Resolved]
